FAERS Safety Report 18617853 (Version 1)
Quarter: 2020Q4

REPORT INFORMATION
  Report Type: Spontaneous
  Country: US (occurrence: US)
  Receive Date: 20201214
  Receipt Date: 20201214
  Transmission Date: 20210114
  Serious: Yes (Death)
  Sender: FDA-Public Use
  Company Number: None

PATIENT
  Age: 57 Year
  Sex: Female

DRUGS (14)
  1. SILDENAFIL 20MG TAB [Suspect]
     Active Substance: SILDENAFIL
     Indication: RAYNAUD^S PHENOMENON
     Dosage: ?          OTHER DOSE:1 TAB;?
     Route: 048
     Dates: start: 20190228, end: 20201116
  2. OMEPRAZOLE. [Concomitant]
     Active Substance: OMEPRAZOLE
  3. ALBUTEROL AER [Concomitant]
     Active Substance: ALBUTEROL
  4. DULOXETINE. [Concomitant]
     Active Substance: DULOXETINE
  5. HYDROCO/APAP [Concomitant]
     Active Substance: ACETAMINOPHEN\HYDROCODONE
  6. ANORO ELLIPT [Concomitant]
  7. CORLANOR [Concomitant]
     Active Substance: IVABRADINE HYDROCHLORIDE
  8. MELOXICAM. [Concomitant]
     Active Substance: MELOXICAM
  9. ALPRAZOLAM. [Concomitant]
     Active Substance: ALPRAZOLAM
  10. FLECAINE [Concomitant]
     Active Substance: FLECAINIDE
  11. MYCOPHENOLIC [Concomitant]
     Active Substance: MYCOPHENOLIC ACID
  12. ENTRESTO [Concomitant]
     Active Substance: SACUBITRIL\VALSARTAN
  13. GABAPENTIN. [Concomitant]
     Active Substance: GABAPENTIN
  14. HYDROXYZ HCL [Concomitant]
     Active Substance: HYDROXYZINE HYDROCHLORIDE

REACTIONS (1)
  - Death [None]

NARRATIVE: CASE EVENT DATE: 20201116
